FAERS Safety Report 20873451 (Version 1)
Quarter: 2022Q2

REPORT INFORMATION
  Report Type: Spontaneous
  Country: US (occurrence: None)
  Receive Date: 20220524
  Receipt Date: 20220524
  Transmission Date: 20220721
  Serious: No
  Sender: FDA-Public Use
  Company Number: None

PATIENT
  Age: 80 Year
  Sex: Female

DRUGS (1)
  1. NUCALA [Suspect]
     Active Substance: MEPOLIZUMAB
     Indication: Asthma
     Dosage: FREQUENCY : MONTHLY;?
     Route: 057
     Dates: start: 20220425, end: 20220425

REACTIONS (4)
  - Headache [None]
  - Fatigue [None]
  - Myalgia [None]
  - Therapy cessation [None]

NARRATIVE: CASE EVENT DATE: 20220425
